FAERS Safety Report 18688529 (Version 1)
Quarter: 2020Q4

REPORT INFORMATION
  Report Type: Spontaneous
  Country: FR (occurrence: FR)
  Receive Date: 20201231
  Receipt Date: 20201231
  Transmission Date: 20210114
  Serious: Yes (Hospitalization, Other)
  Sender: FDA-Public Use
  Company Number: FR-GLAXOSMITHKLINE-FR2020EME254757

PATIENT
  Sex: Female
  Weight: 68 kg

DRUGS (1)
  1. NUCALA [Suspect]
     Active Substance: MEPOLIZUMAB
     Indication: PRODUCT USED FOR UNKNOWN INDICATION
     Dosage: UNK
     Dates: end: 20201219

REACTIONS (8)
  - Localised oedema [Recovering/Resolving]
  - Vertigo [Recovering/Resolving]
  - Anaphylactic reaction [Recovering/Resolving]
  - Face oedema [Unknown]
  - Dyspnoea [Recovering/Resolving]
  - Dysphagia [Recovering/Resolving]
  - Malaise [Unknown]
  - Palpitations [Recovering/Resolving]
